FAERS Safety Report 7283685-4 (Version None)
Quarter: 2011Q1

REPORT INFORMATION
  Report Type: 
  Country: None (occurrence: None)
  Receive Date: 20110204
  Receipt Date: 20110204
  Transmission Date: 20110831
  Serious: Yes (Other)
  Sender: FDA-Public Use
  Company Number: None

PATIENT
  Sex: Female
  Weight: 64.4108 kg

DRUGS (1)
  1. ARIMIDEX [Suspect]
     Dosage: 1 MG DAILY 1X PO
     Route: 048
     Dates: start: 20101203, end: 20101227

REACTIONS (16)
  - ASTHENIA [None]
  - ARTHRALGIA [None]
  - FEELING ABNORMAL [None]
  - HYPOAESTHESIA [None]
  - FATIGUE [None]
  - NECK PAIN [None]
  - MIDDLE INSOMNIA [None]
  - PARAESTHESIA [None]
  - BACK PAIN [None]
  - ALOPECIA [None]
  - AGITATION [None]
  - DEPRESSION [None]
  - PAIN IN EXTREMITY [None]
  - SKIN EXFOLIATION [None]
  - LIBIDO DECREASED [None]
  - HOT FLUSH [None]
